FAERS Safety Report 15960524 (Version 1)
Quarter: 2019Q1

REPORT INFORMATION
  Report Type: Spontaneous
  Country: US (occurrence: US)
  Receive Date: 20190213
  Receipt Date: 20190213
  Transmission Date: 20190417
  Serious: Yes (Disabling)
  Sender: FDA-Public Use
  Company Number: None

PATIENT
  Age: 57 Year
  Sex: Female
  Weight: 78.75 kg

DRUGS (4)
  1. ALPRAZALAM [Concomitant]
  2. OCREVUS [Concomitant]
     Active Substance: OCRELIZUMAB
  3. DULOXETINE. [Suspect]
     Active Substance: DULOXETINE
     Indication: MAJOR DEPRESSION
     Dosage: ?          QUANTITY:2 TABLET(S);?
     Route: 048
  4. TRAZODONE [Concomitant]
     Active Substance: TRAZODONE HYDROCHLORIDE

REACTIONS (2)
  - Drug ineffective [None]
  - Withdrawal syndrome [None]

NARRATIVE: CASE EVENT DATE: 20160201
